FAERS Safety Report 11921812 (Version 2)
Quarter: 2017Q1

REPORT INFORMATION
  Report Type: Spontaneous
  Country: DK (occurrence: DK)
  Receive Date: 20160115
  Receipt Date: 20170104
  Transmission Date: 20170428
  Serious: Yes (Hospitalization)
  Sender: FDA-Public Use
  Company Number: PHHY2016DK001438

PATIENT
  Age: 53 Year
  Sex: Male

DRUGS (8)
  1. BUVENTOL [Concomitant]
     Indication: CHRONIC OBSTRUCTIVE PULMONARY DISEASE
     Route: 065
  2. DOLOL [Concomitant]
     Active Substance: TRAMADOL
     Indication: PAIN
     Route: 065
  3. VIBRADOX [Suspect]
     Active Substance: DOXYCYCLINE
     Indication: CHRONIC OBSTRUCTIVE PULMONARY DISEASE
     Dosage: DOSAGE UNSPECIFIED, STRENGTH: 100 MG
     Route: 048
     Dates: start: 20151201, end: 20151201
  4. CENTYL MED KALIUMKLORID [Suspect]
     Active Substance: BENDROFLUMETHIAZIDE\POTASSIUM CHLORIDE
     Indication: HYPERTENSION
     Dosage: DOSAGE WAS 2,5 + 573 MG, ONE TABLET DAILY
     Route: 048
     Dates: start: 20151128, end: 20151204
  5. VITAMIN D3 [Concomitant]
     Active Substance: CHOLECALCIFEROL
     Indication: VITAMIN SUPPLEMENTATION
     Route: 065
  6. PINEX                                   /DEN/ [Concomitant]
     Indication: PAIN
     Route: 065
  7. PREDNISOLON [Concomitant]
     Active Substance: PREDNISOLONE
     Indication: CHRONIC OBSTRUCTIVE PULMONARY DISEASE
     Route: 065
     Dates: start: 20151201
  8. PANTOPRAZOLE [Concomitant]
     Active Substance: PANTOPRAZOLE SODIUM
     Indication: GASTROOESOPHAGEAL REFLUX DISEASE
     Route: 065

REACTIONS (3)
  - Hyponatraemia [Recovered/Resolved]
  - Nausea [Recovered/Resolved]
  - Vomiting [Recovered/Resolved]

NARRATIVE: CASE EVENT DATE: 201512
